FAERS Safety Report 5965241-0 (Version None)
Quarter: 2008Q4

REPORT INFORMATION
  Report Type: 
  Country: None (occurrence: None)
  Receive Date: 20081125
  Receipt Date: 20071217
  Transmission Date: 20090506
  Serious: No
  Sender: FDA-Public Use
  Company Number: US-AMGEN-US197286

PATIENT
  Sex: Female

DRUGS (5)
  1. ENBREL [Suspect]
     Indication: RHEUMATOID ARTHRITIS
     Route: 058
     Dates: start: 20061017
  2. METHOTREXATE [Concomitant]
     Route: 030
     Dates: start: 20010101
  3. CELLCEPT [Concomitant]
     Route: 065
  4. PREDNISONE TAB [Concomitant]
     Route: 065
  5. CORTICOSTEROIDS [Concomitant]

REACTIONS (4)
  - ARTHRALGIA [None]
  - DRUG INEFFECTIVE [None]
  - INJECTION SITE REACTION [None]
  - RHEUMATOID ARTHRITIS [None]
